FAERS Safety Report 9661810 (Version 1)
Quarter: 2013Q4

REPORT INFORMATION
  Report Type: Spontaneous
  Country: US (occurrence: None)
  Receive Date: 20131030
  Receipt Date: 20131030
  Transmission Date: 20140711
  Serious: Yes (Other)
  Sender: FDA-Public Use
  Company Number: SYM-2013-12041

PATIENT
  Age: 36 Year
  Sex: Male

DRUGS (4)
  1. BUPROPION HYDROCHLORIDE [Suspect]
     Indication: SMOKING CESSATION THERAPY
  2. RISPERIDONE [Suspect]
     Indication: SCHIZOAFFECTIVE DISORDER
  3. BIPERIDEN [Suspect]
     Indication: EXTRAPYRAMIDAL DISORDER
  4. VALPROIC ACID (CALPROIC ACID) (VALPROIC ACID) [Concomitant]

REACTIONS (15)
  - Psychotic disorder [None]
  - Logorrhoea [None]
  - Elevated mood [None]
  - Abnormal behaviour [None]
  - Delusion of grandeur [None]
  - Paranoia [None]
  - Ideas of reference [None]
  - Persecutory delusion [None]
  - Hallucinations, mixed [None]
  - Insomnia [None]
  - Psychomotor hyperactivity [None]
  - Extrapyramidal disorder [None]
  - Condition aggravated [None]
  - Speech disorder [None]
  - General physical health deterioration [None]
